FAERS Safety Report 5262711-8 (Version None)
Quarter: 2007Q1

REPORT INFORMATION
  Report Type: 
  Country: None (occurrence: None)
  Receive Date: 20070308
  Receipt Date: 20070228
  Transmission Date: 20070707
  Serious: Yes (Hospitalization)
  Sender: FDA-Public Use
  Company Number: 2007AL000869

PATIENT
  Age: 43 Year
  Sex: Female

DRUGS (3)
  1. FLUOXETINE [Suspect]
     Dosage: PO
     Route: 048
  2. ZOPICLONE [Concomitant]
  3. VALPROIC ACID [Concomitant]

REACTIONS (3)
  - OVERDOSE [None]
  - PULMONARY FIBROSIS [None]
  - VENTRICULAR TACHYCARDIA [None]
